FAERS Safety Report 15254885 (Version 1)
Quarter: 2018Q3

REPORT INFORMATION
  Report Type: Spontaneous
  Country: CN (occurrence: CN)
  Receive Date: 20180808
  Receipt Date: 20180808
  Transmission Date: 20181010
  Serious: Yes (Other)
  Sender: FDA-Public Use
  Company Number: CN-BAYER-2018-145208

PATIENT
  Age: 67 Year
  Sex: Female
  Weight: 55 kg

DRUGS (2)
  1. BAYASPIRIN 100 MG [Suspect]
     Active Substance: ASPIRIN
     Indication: CEREBRAL INFARCTION
     Dosage: 100 MG, QD
     Route: 048
     Dates: start: 20180612, end: 20180613
  2. BAYASPIRIN 100 MG [Suspect]
     Active Substance: ASPIRIN
     Indication: CEREBRAL INFARCTION
     Dosage: 300 MG, QD
     Route: 048
     Dates: start: 20180611, end: 20180611

REACTIONS (3)
  - Gingival bleeding [Recovered/Resolved]
  - Faeces discoloured [Recovered/Resolved]
  - Abdominal pain [Recovered/Resolved]

NARRATIVE: CASE EVENT DATE: 20180613
